FAERS Safety Report 6568450-5 (Version None)
Quarter: 2010Q1

REPORT INFORMATION
  Report Type: 
  Country: None (occurrence: None)
  Receive Date: 20100203
  Receipt Date: 20100128
  Transmission Date: 20100710
  Serious: Yes (Hospitalization)
  Sender: FDA-Public Use
  Company Number: A0841891A

PATIENT
  Age: 85 Year
  Sex: Male

DRUGS (4)
  1. ADVAIR DISKUS 100/50 [Suspect]
     Indication: ASTHMA
     Dosage: 1PUFF PER DAY
     Route: 055
     Dates: start: 20010101
  2. ASPIRIN [Concomitant]
  3. TYLENOL PM [Concomitant]
  4. VITAMINS [Concomitant]

REACTIONS (8)
  - BLINDNESS [None]
  - CATARACT [None]
  - CEREBROVASCULAR ACCIDENT [None]
  - EYE OPERATION [None]
  - GLAUCOMA [None]
  - PRURITUS [None]
  - RASH [None]
  - URTICARIA [None]
